FAERS Safety Report 6474634-7 (Version None)
Quarter: 2009Q4

REPORT INFORMATION
  Report Type: 
  Country: None (occurrence: None)
  Receive Date: 20091204
  Receipt Date: 20090421
  Transmission Date: 20100525
  Serious: Yes (Death, Hospitalization, Other)
  Sender: FDA-Public Use
  Company Number: US-ELI_LILLY_AND_COMPANY-US200901005654

PATIENT
  Sex: Female
  Weight: 53.968 kg

DRUGS (7)
  1. FORTEO [Suspect]
     Indication: OSTEOPOROSIS
     Dosage: 20 UG, DAILY (1/D)
     Route: 058
     Dates: start: 20080215, end: 20081224
  2. PLAQUENIL [Concomitant]
  3. METOPROLOL TARTRATE [Concomitant]
  4. COUMADIN [Concomitant]
  5. DIOVAN [Concomitant]
  6. DITROPAN /USA/ [Concomitant]
  7. CALCIUM WITH VITAMIN D [Concomitant]

REACTIONS (7)
  - BONE FISSURE [None]
  - DEATH [None]
  - FALL [None]
  - HIP FRACTURE [None]
  - HYPOTENSION [None]
  - MYOCARDIAL INFARCTION [None]
  - RENAL FAILURE [None]
